FAERS Safety Report 7284011-7 (Version None)
Quarter: 2011Q1

REPORT INFORMATION
  Report Type: 
  Country: None (occurrence: None)
  Receive Date: 20110209
  Receipt Date: 20110202
  Transmission Date: 20110831
  Serious: Yes (Hospitalization, Other)
  Sender: FDA-Public Use
  Company Number: US-US-EMD SERONO, INC.-7040064

PATIENT
  Sex: Female

DRUGS (5)
  1. DETROL [Concomitant]
  2. REBIF [Suspect]
     Indication: MULTIPLE SCLEROSIS
     Route: 058
     Dates: start: 20040329
  3. BACLOFEN [Concomitant]
  4. ZANAFLEX [Concomitant]
  5. CELEXA [Concomitant]

REACTIONS (4)
  - MULTIPLE SCLEROSIS RELAPSE [None]
  - STAPHYLOCOCCAL INFECTION [None]
  - CLOSTRIDIAL INFECTION [None]
  - FATIGUE [None]
